FAERS Safety Report 17428787 (Version 1)
Quarter: 2020Q1

REPORT INFORMATION
  Report Type: Spontaneous
  Country: AU (occurrence: AU)
  Receive Date: 20200218
  Receipt Date: 20200218
  Transmission Date: 20200409
  Serious: Yes (Other)
  Sender: FDA-Public Use
  Company Number: AU-PFIZER INC-2020035167

PATIENT
  Age: 44 Year
  Sex: Female

DRUGS (4)
  1. SYNAREL [Suspect]
     Active Substance: NAFARELIN ACETATE
     Indication: DYSFUNCTIONAL UTERINE BLEEDING
     Dosage: 1 SPRAY, 2X/DAY
     Route: 045
     Dates: start: 20200113, end: 20200124
  2. WARFARIN [Concomitant]
     Active Substance: WARFARIN
     Indication: SURGERY
     Dosage: 3/3.5 MG, ALTERNATE DAYS
     Route: 048
  3. WARFARIN [Concomitant]
     Active Substance: WARFARIN
     Indication: MITRAL VALVE REPLACEMENT
     Dosage: 3/3.5 MG, ALTERNATE DAYS
     Route: 048
  4. WARFARIN [Concomitant]
     Active Substance: WARFARIN
     Indication: ATRIAL FIBRILLATION

REACTIONS (5)
  - Amnesia [Recovering/Resolving]
  - International normalised ratio decreased [Recovering/Resolving]
  - Nervous system disorder [Recovering/Resolving]
  - Dizziness [Recovering/Resolving]
  - Feeling abnormal [Recovering/Resolving]

NARRATIVE: CASE EVENT DATE: 2020
